FAERS Safety Report 22222196 (Version 5)
Quarter: 2024Q3

REPORT INFORMATION
  Report Type: Spontaneous
  Country: US (occurrence: US)
  Receive Date: 20230418
  Receipt Date: 20240816
  Transmission Date: 20241017
  Serious: No
  Sender: PFIZER
  Company Number: US-PFIZER INC-202300147803

PATIENT
  Age: 7 Year
  Sex: Male
  Weight: 45.4 kg

DRUGS (5)
  1. GENOTROPIN [Suspect]
     Active Substance: SOMATROPIN
     Indication: Brain neoplasm
     Dosage: 1.4 MG (BY INJECTION NIGHTLY 6 OUT 7 DAYS A WEEK)
     Dates: start: 202301
  2. GENOTROPIN [Suspect]
     Active Substance: SOMATROPIN
     Indication: Growth hormone deficiency
  3. HYDROCORTISONE [Concomitant]
     Active Substance: HYDROCORTISONE\HYDROCORTISONE ACETATE
     Dosage: UNK (5MG IN THE MORNING; 2.5MG IN THE AFTERNOON; AND 2.5 MG AT NIGHT)
  4. DDAVP [Concomitant]
     Active Substance: DESMOPRESSIN ACETATE
     Dosage: UNK, 2X/DAY (TWICE A DAY)
  5. LEVOTHYROXINE [Concomitant]
     Active Substance: LEVOTHYROXINE\LEVOTHYROXINE SODIUM
     Dosage: UNK, 1X/DAY(EVERY MORNING)

REACTIONS (2)
  - Poor quality device used [Unknown]
  - Device use error [Unknown]

NARRATIVE: CASE EVENT DATE: 20230404
